FAERS Safety Report 23814410 (Version 1)
Quarter: 2024Q2

REPORT INFORMATION
  Report Type: Spontaneous
  Country: NL (occurrence: NL)
  Receive Date: 20240503
  Receipt Date: 20240503
  Transmission Date: 20240716
  Serious: Yes (Hospitalization, Other)
  Sender: FDA-Public Use
  Company Number: NL-MSNLABS-2024MSNLIT00963

PATIENT

DRUGS (1)
  1. HALOPERIDOL [Suspect]
     Active Substance: HALOPERIDOL
     Indication: Product used for unknown indication
     Dosage: 3-5 TABLETS
     Route: 065

REACTIONS (2)
  - Intentional overdose [Unknown]
  - Neuroleptic malignant syndrome [Recovered/Resolved]
